FAERS Safety Report 6283018-6 (Version None)
Quarter: 2009Q3

REPORT INFORMATION
  Report Type: 
  Country: None (occurrence: None)
  Receive Date: 20090724
  Receipt Date: 20090721
  Transmission Date: 20100115
  Serious: Yes (Death, Hospitalization)
  Sender: FDA-Public Use
  Company Number: PE-BRISTOL-MYERS SQUIBB COMPANY-14643886

PATIENT
  Age: 72 Year
  Sex: Female

DRUGS (1)
  1. IXEMPRA KIT [Suspect]
     Indication: BREAST CANCER METASTATIC
     Dosage: 40MG/M 2
     Route: 042
     Dates: start: 20080901

REACTIONS (3)
  - HYPERCOAGULATION [None]
  - PULMONARY EMBOLISM [None]
  - URINARY TRACT INFECTION [None]
